FAERS Safety Report 11401980 (Version 1)
Quarter: 2015Q3

REPORT INFORMATION
  Report Type: Spontaneous
  Country: PL (occurrence: PL)
  Receive Date: 20150821
  Receipt Date: 20150821
  Transmission Date: 20151125
  Serious: Yes (Hospitalization, Other)
  Sender: FDA-Public Use
  Company Number: PL-ACCORD-033236

PATIENT
  Age: 75 Year
  Sex: Female

DRUGS (4)
  1. DOXORUBICIN [Suspect]
     Active Substance: DOXORUBICIN
     Indication: BREAST CANCER RECURRENT
     Dosage: FAC REGIMEN?RECEIVED TOTAL 3 CYCLE
     Dates: start: 201312
  2. LETROZOLE. [Suspect]
     Active Substance: LETROZOLE
     Indication: BREAST CANCER RECURRENT
     Dates: start: 201408
  3. CYCLOPHOSPHAMIDE/CYCLOPHOSPHAMIDE MONOHYDRATE [Suspect]
     Active Substance: CYCLOPHOSPHAMIDE
     Indication: BREAST CANCER RECURRENT
     Dosage: FAC REGIMEN?RECEIVED TOTAL 3 CYCLE
     Dates: start: 201312
  4. FLUOROURACIL. [Suspect]
     Active Substance: FLUOROURACIL
     Indication: BREAST CANCER RECURRENT
     Dosage: FAC REGIMEN?RECEIVED TOTAL 3 CYCLE
     Dates: start: 201312

REACTIONS (3)
  - Pulmonary arterial pressure increased [Recovering/Resolving]
  - Anaemia [Unknown]
  - Pulmonary embolism [Recovering/Resolving]
